FAERS Safety Report 20219475 (Version 2)
Quarter: 2021Q4

REPORT INFORMATION
  Report Type: Report from Study
  Country: CA (occurrence: CA)
  Receive Date: 20211222
  Receipt Date: 20211222
  Transmission Date: 20220303
  Serious: Yes (Other)
  Sender: FDA-Public Use
  Company Number: CA-ABBVIE-21K-028-4202247-00

PATIENT
  Sex: Female

DRUGS (1)
  1. RINVOQ [Suspect]
     Active Substance: UPADACITINIB
     Indication: Rheumatoid arthritis
     Route: 048
     Dates: start: 20210629

REACTIONS (9)
  - Suicide attempt [Unknown]
  - Suicidal ideation [Unknown]
  - Pain [Unknown]
  - Grief reaction [Unknown]
  - Depression [Unknown]
  - Neuralgia [Unknown]
  - Crying [Unknown]
  - Feeling hot [Unknown]
  - Fall [Unknown]

NARRATIVE: CASE EVENT DATE: 20210101
